FAERS Safety Report 15681091 (Version 1)
Quarter: 2018Q4

REPORT INFORMATION
  Report Type: Spontaneous
  Country: JP (occurrence: JP)
  Receive Date: 20181203
  Receipt Date: 20181203
  Transmission Date: 20190205
  Serious: Yes (Hospitalization, Other)
  Sender: FDA-Public Use
  Company Number: JP-GLAXOSMITHKLINE-JP2018JPN215833

PATIENT
  Age: 8 Decade
  Sex: Female

DRUGS (1)
  1. IMIGRAN STATDOSE [Suspect]
     Active Substance: SUMATRIPTAN
     Dosage: UNK
     Route: 058

REACTIONS (2)
  - Ovarian neoplasm [Unknown]
  - Uterine neoplasm [Unknown]
